FAERS Safety Report 13663975 (Version 1)
Quarter: 2017Q2

REPORT INFORMATION
  Report Type: Spontaneous
  Country: US (occurrence: US)
  Receive Date: 20170618
  Receipt Date: 20170618
  Transmission Date: 20170830
  Serious: Yes (Hospitalization)
  Sender: FDA-Public Use
  Company Number: None

PATIENT
  Age: 42 Year
  Sex: Female
  Weight: 68.85 kg

DRUGS (1)
  1. RITUXIMAB [Suspect]
     Active Substance: RITUXIMAB
     Indication: DIFFUSE LARGE B-CELL LYMPHOMA
     Dosage: ?          OTHER FREQUENCY:Q21-28 DAY CYCLES;?
     Route: 041
     Dates: start: 20170206, end: 20170308

REACTIONS (5)
  - Seizure [None]
  - Foaming at mouth [None]
  - Incontinence [None]
  - Tonic clonic movements [None]
  - Infusion related reaction [None]

NARRATIVE: CASE EVENT DATE: 20170301
